FAERS Safety Report 8862401 (Version 1)
Quarter: 2012Q4

REPORT INFORMATION
  Report Type: 
  Country: BR (occurrence: BR)
  Receive Date: 20121026
  Receipt Date: 20121026
  Transmission Date: 20130627
  Serious: Yes (Death, Hospitalization)
  Sender: FDA-Public Use
  Company Number: BR-PFIZER INC-2012054852

PATIENT
  Age: 44 Year
  Sex: Female

DRUGS (5)
  1. SUTENT [Suspect]
     Indication: PANCREATIC NEUROENDOCRINE TUMOUR
     Dosage: 37.5 mg, daily (Cycle 1 for 2)
     Route: 048
     Dates: start: 20120215
  2. SUTENT [Suspect]
     Indication: GASTRIC SARCOMA
  3. LUFTAL [Concomitant]
     Dosage: UNK
  4. TAMARINE [Concomitant]
     Dosage: UNK
  5. MINERAL OIL [Concomitant]
     Dosage: 1 spoon 1x/day in the moorning

REACTIONS (9)
  - Death [Fatal]
  - Anaemia [Unknown]
  - Oedema peripheral [Recovered/Resolved]
  - Constipation [Unknown]
  - Flatulence [Recovering/Resolving]
  - Abdominal distension [Not Recovered/Not Resolved]
  - Headache [Not Recovered/Not Resolved]
  - Acne [Unknown]
  - Pruritus [Unknown]
